FAERS Safety Report 23105044 (Version 1)
Quarter: 2023Q4

REPORT INFORMATION
  Report Type: Report from Study
  Country: CA (occurrence: CA)
  Receive Date: 20231025
  Receipt Date: 20231025
  Transmission Date: 20240110
  Serious: Yes (Hospitalization, Other)
  Sender: FDA-Public Use
  Company Number: CA-SANDOZ-SDZ2023CA008815

PATIENT
  Sex: Female

DRUGS (1)
  1. HYRIMOZ [Suspect]
     Active Substance: ADALIMUMAB-ADAZ
     Indication: Crohn^s disease
     Dosage: 40 MG, PREFILLED PEN
     Route: 058
     Dates: start: 20220513

REACTIONS (5)
  - Hip fracture [Not Recovered/Not Resolved]
  - Fall [Unknown]
  - Product dose omission issue [Unknown]
  - Pain [Not Recovered/Not Resolved]
  - Vomiting [Unknown]
